FAERS Safety Report 13075518 (Version 1)
Quarter: 2016Q4

REPORT INFORMATION
  Report Type: Spontaneous
  Country: US (occurrence: US)
  Receive Date: 20161229
  Receipt Date: 20161229
  Transmission Date: 20170207
  Serious: Yes (Disabling)
  Sender: FDA-Public Use
  Company Number: None

PATIENT
  Age: 56 Year
  Sex: Female
  Weight: 84.6 kg

DRUGS (7)
  1. GENTAMICIN SULFATE OPHTHALMIC SOLUTION [Concomitant]
  2. FLUCONAZOLE. [Concomitant]
     Active Substance: FLUCONAZOLE
  3. VIGAMOX OPHTHALMIC SOLUTION [Concomitant]
  4. AMOXICILLIN. [Concomitant]
     Active Substance: AMOXICILLIN
  5. CETIRIZINE-D HCL [Concomitant]
  6. BECONASE AQ [Suspect]
     Active Substance: BECLOMETHASONE DIPROPIONATE MONOHYDRATE
     Indication: NASAL CONGESTION
     Dosage: ?          QUANTITY:1 SPRAY(S);?
     Route: 045
     Dates: start: 20161202, end: 20161203
  7. SERTRALINE [Concomitant]
     Active Substance: SERTRALINE HYDROCHLORIDE

REACTIONS (6)
  - Joint stiffness [None]
  - Periorbital disorder [None]
  - Inflammation [None]
  - Acute sinusitis [None]
  - Musculoskeletal stiffness [None]
  - Arthralgia [None]

NARRATIVE: CASE EVENT DATE: 20161202
